FAERS Safety Report 22772595 (Version 5)
Quarter: 2024Q3

REPORT INFORMATION
  Report Type: Spontaneous
  Country: US (occurrence: US)
  Receive Date: 20230801
  Receipt Date: 20240717
  Transmission Date: 20241016
  Serious: Yes (Other)
  Sender: PFIZER
  Company Number: US-PFIZER INC-PV202300093732

PATIENT
  Age: 84 Year
  Sex: Female

DRUGS (4)
  1. IBRANCE [Suspect]
     Active Substance: PALBOCICLIB
     Indication: Breast cancer female
     Dosage: 125 MG, ON DAYS 1-21 Q 28 DAYS
     Route: 048
     Dates: start: 20170707
  2. IBRANCE [Suspect]
     Active Substance: PALBOCICLIB
     Dosage: 100 MG, ON DAYS 1-21 Q 28 DAYS
     Route: 048
     Dates: start: 20170907, end: 20220718
  3. IBRANCE [Suspect]
     Active Substance: PALBOCICLIB
     Dosage: ONE CAPSULE PO (PER ORAL) DAILY FOR ONE WEEK, OFF ONE WEEK, ON ONE WEEK, OFF ONE WEEK
     Route: 048
  4. EXEMESTANE [Concomitant]
     Active Substance: EXEMESTANE
     Dosage: 25 MG, 1X/DAY
     Route: 048
     Dates: start: 20170707, end: 20210302

REACTIONS (3)
  - Chronic kidney disease [Unknown]
  - Off label use [Unknown]
  - Anaemia [Unknown]

NARRATIVE: CASE EVENT DATE: 20220218
